FAERS Safety Report 4649655-7 (Version None)
Quarter: 2005Q2

REPORT INFORMATION
  Report Type: 
  Country: None (occurrence: None)
  Receive Date: 20050502
  Receipt Date: 20050204
  Transmission Date: 20051028
  Serious: Yes (Hospitalization)
  Sender: FDA-Public Use
  Company Number: US-BRISTOL-MYERS SQUIBB COMPANY-12851101

PATIENT
  Age: 74 Year
  Sex: Male
  Weight: 83 kg

DRUGS (10)
  1. CISPLATIN [Suspect]
     Indication: SMALL CELL LUNG CANCER STAGE UNSPECIFIED
     Dosage: CYCLE 1-3, DAY 1, EVERY 21 DAYS
     Route: 042
     Dates: start: 20010828, end: 20011029
  2. CAMPTOSAR [Suspect]
     Indication: SMALL CELL LUNG CANCER STAGE UNSPECIFIED
     Dosage: CYCLE 1-3, DAY 1, EVERY 21 DAYS
     Route: 042
     Dates: start: 20010828, end: 20011029
  3. DILTIAZEM HCL [Concomitant]
     Indication: CORONARY ARTERY DISEASE
     Route: 048
     Dates: start: 19971101, end: 20011103
  4. TAMSULOSIN HCL [Concomitant]
     Indication: DYSURIA
     Route: 048
     Dates: start: 20011025, end: 20011103
  5. WARFARIN SODIUM [Concomitant]
     Indication: CORONARY ARTERY DISEASE
     Route: 048
     Dates: start: 19971101, end: 20011103
  6. DEXAMETHASONE [Concomitant]
     Indication: PROPHYLAXIS
     Dosage: EACH CYCLE
     Route: 048
     Dates: start: 20011015, end: 20011103
  7. ATORVASTATIN CALCIUM [Concomitant]
     Indication: HYPERCHOLESTEROLAEMIA
     Route: 048
     Dates: start: 19971101, end: 20011103
  8. METOPROLOL SUCCINATE [Concomitant]
     Indication: CORONARY ARTERY DISEASE
     Route: 048
     Dates: start: 19971101, end: 20011103
  9. DIGOXIN [Concomitant]
     Indication: CORONARY ARTERY DISEASE
     Route: 048
     Dates: start: 19971101, end: 20011103
  10. MORNIFLUMATE [Concomitant]
     Dates: start: 20011025, end: 20011103

REACTIONS (4)
  - DEHYDRATION [None]
  - FAILURE TO THRIVE [None]
  - PNEUMONIA [None]
  - VISION BLURRED [None]
